FAERS Safety Report 11951331 (Version 4)
Quarter: 2016Q2

REPORT INFORMATION
  Report Type: Spontaneous
  Country: DE (occurrence: DE)
  Receive Date: 20160126
  Receipt Date: 20160421
  Transmission Date: 20160815
  Serious: Yes (Hospitalization, Other)
  Sender: FDA-Public Use
  Company Number: DE-OTSUKA-2016_001825

PATIENT
  Age: 86 Year
  Sex: Female

DRUGS (2)
  1. SAMSCA [Suspect]
     Active Substance: TOLVAPTAN
     Dosage: 15 MG, QD
     Route: 065
     Dates: start: 20160111, end: 20160116
  2. SAMSCA [Suspect]
     Active Substance: TOLVAPTAN
     Indication: BLOOD SODIUM DECREASED
     Dosage: 15 MG, QD
     Route: 065
     Dates: start: 20160104, end: 20160106

REACTIONS (3)
  - Syncope [Unknown]
  - Cerebrovascular accident [Unknown]
  - Epilepsy [Unknown]

NARRATIVE: CASE EVENT DATE: 201601
